FAERS Safety Report 6298493-0 (Version None)
Quarter: 2009Q3

REPORT INFORMATION
  Report Type: 
  Country: None (occurrence: None)
  Receive Date: 20090805
  Receipt Date: 20090729
  Transmission Date: 20100115
  Serious: Yes (Death, Hospitalization, Other)
  Sender: FDA-Public Use
  Company Number: FR-GILEAD-2009-0023197

PATIENT
  Sex: Male

DRUGS (13)
  1. TRUVADA [Suspect]
     Indication: HIV INFECTION
     Route: 048
     Dates: start: 20060922, end: 20090615
  2. CIFLOX [Suspect]
     Indication: PROSTATITIS
     Route: 048
     Dates: start: 20090606, end: 20090618
  3. TARGOCID [Suspect]
     Indication: LUNG DISORDER
     Route: 042
     Dates: start: 20090629
  4. TARGOCID [Suspect]
     Route: 042
     Dates: start: 20090627
  5. TARGOCID [Suspect]
     Route: 042
     Dates: start: 20090619
  6. NORVIR [Concomitant]
  7. REYATAZ [Concomitant]
  8. AMAREL [Concomitant]
  9. EQUANIL [Concomitant]
  10. RENITEC [Concomitant]
  11. COMBIVIR [Concomitant]
     Indication: HIV INFECTION
     Dates: start: 20090615
  12. TAZOCILLINE [Concomitant]
     Indication: URINARY TRACT INFECTION
     Route: 042
     Dates: start: 20090627, end: 20090707
  13. TAZOCILLINE [Concomitant]
     Route: 042
     Dates: start: 20090619

REACTIONS (7)
  - CACHEXIA [None]
  - DECREASED APPETITE [None]
  - MELAENA [None]
  - PULMONARY EMBOLISM [None]
  - REFLUX OESOPHAGITIS [None]
  - RENAL FAILURE [None]
  - RENAL FAILURE CHRONIC [None]
